FAERS Safety Report 19469918 (Version 1)
Quarter: 2021Q2

REPORT INFORMATION
  Report Type: Spontaneous
  Country: US (occurrence: US)
  Receive Date: 20210629
  Receipt Date: 20210629
  Transmission Date: 20210717
  Serious: Yes (Other)
  Sender: FDA-Public Use
  Company Number: US-SA-2021SA208654

PATIENT
  Age: 65 Year
  Sex: Female
  Weight: 102.1 kg

DRUGS (9)
  1. METHYLPREDNISOLONE SODIUM SUCCINATE. [Suspect]
     Active Substance: METHYLPREDNISOLONE SODIUM SUCCINATE
     Indication: ARTHROPOD STING
  2. FAMOTIDINE. [Suspect]
     Active Substance: FAMOTIDINE
     Indication: ARTHROPOD STING
  3. PREDNISONE. [Suspect]
     Active Substance: PREDNISONE
     Indication: ARTHROPOD STING
     Dosage: 125 MG
     Route: 042
     Dates: start: 20190806
  4. EPINEPHRINE. [Suspect]
     Active Substance: EPINEPHRINE
     Indication: ANAPHYLACTIC REACTION
  5. DIPHENHYDRAMINE HYDROCHLORIDE. [Suspect]
     Active Substance: DIPHENHYDRAMINE HYDROCHLORIDE
     Indication: ARTHROPOD STING
     Dosage: 50 MG
     Route: 042
     Dates: start: 20190806
  6. FAMOTIDINE. [Suspect]
     Active Substance: FAMOTIDINE
     Indication: ANAPHYLACTIC REACTION
     Dosage: 20 MG (INJECTION)
     Route: 042
     Dates: start: 20190806
  7. EPINEPHRINE. [Suspect]
     Active Substance: EPINEPHRINE
     Indication: ARTHROPOD STING
     Dosage: 1 MG, QD (1 MG, IN THE MUSCLE OF LEFT ARM)
     Route: 030
     Dates: start: 20190806, end: 20190806
  8. METHYLPREDNISOLONE SODIUM SUCCINATE. [Suspect]
     Active Substance: METHYLPREDNISOLONE SODIUM SUCCINATE
     Indication: ANAPHYLACTIC REACTION
     Dosage: 125 MG
     Route: 042
     Dates: start: 20190806
  9. DIPHENHYDRAMINE HYDROCHLORIDE. [Suspect]
     Active Substance: DIPHENHYDRAMINE HYDROCHLORIDE
     Indication: ANAPHYLACTIC REACTION
     Dosage: UNK

REACTIONS (15)
  - Fear [Recovered/Resolved]
  - Metamorphopsia [Recovered/Resolved]
  - Speech disorder [Recovered/Resolved]
  - Muscle spasms [Recovered/Resolved]
  - Mental disorder [Unknown]
  - Paranoia [Recovered/Resolved]
  - Panic attack [Recovered/Resolved]
  - Overdose [Unknown]
  - Tremor [Recovered/Resolved]
  - Cold sweat [Recovered/Resolved]
  - Psychotic disorder [Unknown]
  - Anxiety [Recovered/Resolved with Sequelae]
  - Incorrect route of product administration [Unknown]
  - Agitation [Unknown]
  - Aggression [Unknown]

NARRATIVE: CASE EVENT DATE: 20190806
